FAERS Safety Report 14251483 (Version 3)
Quarter: 2018Q4

REPORT INFORMATION
  Report Type: Report from Study
  Country: AR (occurrence: AR)
  Receive Date: 20171205
  Receipt Date: 20181030
  Transmission Date: 20190204
  Serious: Yes (Hospitalization, Other)
  Sender: FDA-Public Use
  Company Number: PHHY2017AR178876

PATIENT
  Sex: Female

DRUGS (5)
  1. DIOVAN [Suspect]
     Active Substance: VALSARTAN
     Indication: HYPERTENSION
     Dosage: 2 DF (VALSARTAN 80 UNITS NOT PROVIDED), QD
     Route: 065
  2. DIOVAN [Suspect]
     Active Substance: VALSARTAN
     Dosage: 80 MG, 2 OR 3 PER DAY
     Route: 065
  3. AMLODIPINE [Suspect]
     Active Substance: AMLODIPINE BESYLATE
     Indication: PRODUCT USED FOR UNKNOWN INDICATION
     Dosage: UNK
     Route: 065
  4. TRAMADOL. [Suspect]
     Active Substance: TRAMADOL
     Indication: PRODUCT USED FOR UNKNOWN INDICATION
     Route: 065
  5. DIOVAN D [Suspect]
     Active Substance: HYDROCHLOROTHIAZIDE\VALSARTAN
     Indication: HYPERTENSION
     Dosage: 1 DF (HYDROCHLOROTHIAZIDE UNKNOWN AND VALSARTAN 80, UNIT NOT PROVIDED), QD
     Route: 065

REACTIONS (17)
  - Musculoskeletal pain [Unknown]
  - Emotional disorder [Unknown]
  - Memory impairment [Unknown]
  - Logorrhoea [Unknown]
  - Abdominal pain [Unknown]
  - Peripheral swelling [Recovering/Resolving]
  - Blood pressure increased [Recovering/Resolving]
  - Eating disorder [Unknown]
  - Osteoarthritis [Unknown]
  - Gait inability [Unknown]
  - Fall [Unknown]
  - Blood pressure decreased [Unknown]
  - Dizziness [Unknown]
  - Blood cholesterol abnormal [Unknown]
  - Malaise [Unknown]
  - Injury [Unknown]
  - Stress [Recovering/Resolving]
